FAERS Safety Report 12998555 (Version 1)
Quarter: 2016Q4

REPORT INFORMATION
  Report Type: Spontaneous
  Country: US (occurrence: US)
  Receive Date: 20161205
  Receipt Date: 20161205
  Transmission Date: 20170207
  Serious: Yes (Other)
  Sender: FDA-Public Use
  Company Number: US-JNJFOC-20161203101

PATIENT
  Sex: Female

DRUGS (2)
  1. TYLENOL COLD PLUS FLU SEVERE DAY/NIGHT [Suspect]
     Active Substance: ACETAMINOPHEN\CHLORPHENIRAMINE MALEATE\DEXTROMETHORPHAN HYDROBROMIDE\GUAIFENESIN\PHENYLEPHRINE HYDROCHLORIDE
     Indication: NASOPHARYNGITIS
     Dosage: ABOUT 9 DAYS
     Route: 048
     Dates: start: 201611
  2. TYLENOL COLD PLUS FLU SEVERE DAY/NIGHT [Suspect]
     Active Substance: ACETAMINOPHEN\CHLORPHENIRAMINE MALEATE\DEXTROMETHORPHAN HYDROBROMIDE\GUAIFENESIN\PHENYLEPHRINE HYDROCHLORIDE
     Indication: NASOPHARYNGITIS
     Dosage: ABOUT 9 DAYS
     Route: 048
     Dates: start: 201611

REACTIONS (3)
  - Alcohol use [None]
  - Cardiac disorder [Recovered/Resolved]
  - Angina pectoris [Recovered/Resolved]

NARRATIVE: CASE EVENT DATE: 201611
